FAERS Safety Report 9346976 (Version 1)
Quarter: 2013Q2

REPORT INFORMATION
  Report Type: Spontaneous
  Country: US (occurrence: US)
  Receive Date: 20130613
  Receipt Date: 20130613
  Transmission Date: 20140414
  Serious: Yes (Other)
  Sender: FDA-Public Use
  Company Number: US-GLAXOSMITHKLINE-A1026434A

PATIENT
  Age: 54 Year
  Sex: Male

DRUGS (17)
  1. ARZERRA [Suspect]
     Indication: CHRONIC LYMPHOCYTIC LEUKAEMIA
     Dosage: 2000MG WEEKLY
     Route: 042
     Dates: start: 20130418
  2. GABAPENTIN [Concomitant]
     Dosage: 300MG PER DAY
  3. LASIX [Concomitant]
     Dosage: 20MG PER DAY
  4. SYNTHROID [Concomitant]
     Dosage: 125MCG PER DAY
  5. POTASSIUM CHLORIDE [Concomitant]
     Indication: SUPPLEMENTATION THERAPY
  6. PRILOSEC [Concomitant]
     Dosage: 20MG PER DAY
  7. ACYCLOVIR [Concomitant]
     Dosage: 400MG TWICE PER DAY
  8. ADVAIR [Concomitant]
  9. BACTRIM [Concomitant]
  10. CIPRO [Concomitant]
     Dosage: 500MG TWICE PER DAY
  11. COUMADIN [Concomitant]
  12. FLONASE [Concomitant]
  13. ZOFRAN [Concomitant]
  14. PROCHLORPERAZINE [Concomitant]
     Route: 048
  15. TOPROL XL [Concomitant]
     Dosage: 100MG PER DAY
  16. VALTREX [Concomitant]
  17. SIMVASTATIN [Concomitant]
     Dosage: 20MG PER DAY

REACTIONS (1)
  - Erythema multiforme [Unknown]
